FAERS Safety Report 22127899 (Version 1)
Quarter: 2023Q1

REPORT INFORMATION
  Report Type: Spontaneous
  Country: US (occurrence: US)
  Receive Date: 20230323
  Receipt Date: 20230323
  Transmission Date: 20230418
  Serious: No
  Sender: FDA-Public Use
  Company Number: US-ALLERGAN-2232366US

PATIENT
  Sex: Male

DRUGS (1)
  1. LINZESS [Suspect]
     Active Substance: LINACLOTIDE
     Indication: Irritable bowel syndrome
     Dosage: UNKNOWN
     Route: 048

REACTIONS (3)
  - Wrong technique in product usage process [Unknown]
  - Therapeutic product effect increased [Unknown]
  - Diarrhoea [Not Recovered/Not Resolved]
